FAERS Safety Report 14153057 (Version 1)
Quarter: 2017Q4

REPORT INFORMATION
  Report Type: Spontaneous
  Country: US (occurrence: US)
  Receive Date: 20171102
  Receipt Date: 20171102
  Transmission Date: 20180321
  Serious: No
  Sender: FDA-Public Use
  Company Number: US-UPSHER-SMITH LABORATORIES, INC.-2017USL00127

PATIENT
  Age: 80 Year
  Sex: Female
  Weight: 63.95 kg

DRUGS (6)
  1. PREDNISONE. [Concomitant]
     Active Substance: PREDNISONE
     Dosage: UNK
  2. JANTOVEN [Suspect]
     Active Substance: WARFARIN SODIUM
     Indication: THROMBOSIS
     Dosage: 7.5 MG, 1X/DAY
     Route: 048
     Dates: start: 201610, end: 20170711
  3. ENALAPRIL [Concomitant]
     Active Substance: ENALAPRIL
     Dosage: UNK
  4. AMLODIPINE [Concomitant]
     Active Substance: AMLODIPINE BESYLATE
     Dosage: UNK
  5. JANTOVEN [Suspect]
     Active Substance: WARFARIN SODIUM
     Dosage: 3.75 MG, 1X/DAY
     Route: 048
     Dates: start: 201707
  6. BISOPROLOL FUMARATE; HYDROCHLOROTHIAZIDE [Concomitant]

REACTIONS (3)
  - Haematoma [Recovering/Resolving]
  - International normalised ratio decreased [Unknown]
  - International normalised ratio increased [Recovered/Resolved]

NARRATIVE: CASE EVENT DATE: 201707
